FAERS Safety Report 4375033-4 (Version None)
Quarter: 2004Q2

REPORT INFORMATION
  Report Type: 
  Country: None (occurrence: None)
  Receive Date: 20040604
  Receipt Date: 20040525
  Transmission Date: 20050107
  Serious: Yes (Hospitalization, Other)
  Sender: FDA-Public Use
  Company Number: HQWYE124327MAY04

PATIENT
  Age: 24 Month
  Sex: Male

DRUGS (3)
  1. CHILDREN'S ADVIL [Suspect]
     Indication: PYREXIA
     Dosage: UNKNOWN; ORAL
     Route: 048
     Dates: start: 20040304, end: 20040309
  2. AUGMENTIN '500' [Suspect]
     Dosage: UNKNOWN; ORAL
     Route: 048
     Dates: start: 20040306, end: 20040309
  3. CEFPODOXIME PROXETIL [Suspect]
     Indication: PYREXIA
     Dosage: UNKNOWN; ORAL
     Route: 048
     Dates: start: 20040304, end: 20040306

REACTIONS (1)
  - RETROPHARYNGEAL ABSCESS [None]
